FAERS Safety Report 11658878 (Version 1)
Quarter: 2015Q4

REPORT INFORMATION
  Report Type: Spontaneous
  Country: US (occurrence: None)
  Receive Date: 20151023
  Receipt Date: 20151023
  Transmission Date: 20160304
  Serious: No
  Sender: FDA-Public Use
  Company Number: None

PATIENT
  Sex: Female

DRUGS (3)
  1. PRAVASTATIN [Concomitant]
     Active Substance: PRAVASTATIN\PRAVASTATIN SODIUM
  2. LISINOPRIL. [Concomitant]
     Active Substance: LISINOPRIL
  3. PROCRIT [Suspect]
     Active Substance: ERYTHROPOIETIN
     Indication: ANAEMIA
     Dosage: 60,000 UNITS
     Route: 058
     Dates: start: 20150612

REACTIONS (2)
  - Pain in extremity [None]
  - Fatigue [None]
